FAERS Safety Report 16268824 (Version 1)
Quarter: 2019Q2

REPORT INFORMATION
  Report Type: Spontaneous
  Country: US (occurrence: US)
  Receive Date: 20190503
  Receipt Date: 20190503
  Transmission Date: 20190711
  Serious: Yes (Hospitalization)
  Sender: FDA-Public Use
  Company Number: US-LANNETT COMPANY, INC.-US-2019LAN000935

PATIENT

DRUGS (4)
  1. DANAZOL (50MG AND 100MG) [Suspect]
     Active Substance: DANAZOL
     Indication: ANGIOEDEMA
     Dosage: 100 MG, BID (IN THE A.M AND 100MG IN THE P.M)
     Route: 048
     Dates: start: 2018
  2. PAXIL [Concomitant]
     Active Substance: PAROXETINE HYDROCHLORIDE
     Indication: ANXIETY
     Dosage: UNK
  3. KALBITOR [Concomitant]
     Active Substance: ECALLANTIDE
     Indication: SWELLING
     Dosage: UNK
  4. DANAZOL (50MG AND 100MG) [Suspect]
     Active Substance: DANAZOL
     Dosage: 50 MG, BID
     Route: 048
     Dates: start: 2009, end: 2018

REACTIONS (3)
  - Multiple sclerosis [Unknown]
  - Gait inability [Unknown]
  - Muscular weakness [Unknown]

NARRATIVE: CASE EVENT DATE: 201812
